FAERS Safety Report 16049360 (Version 1)
Quarter: 2019Q1

REPORT INFORMATION
  Report Type: Spontaneous
  Country: US (occurrence: US)
  Receive Date: 20190307
  Receipt Date: 20190307
  Transmission Date: 20190418
  Serious: Yes (Other)
  Sender: FDA-Public Use
  Company Number: PHEH2019US009240

PATIENT
  Sex: Female
  Weight: 54.43 kg

DRUGS (2)
  1. ADAPALENE. [Suspect]
     Active Substance: ADAPALENE
     Indication: ACNE
     Dosage: UNK
     Route: 065
  2. FENTANYL. [Concomitant]
     Active Substance: FENTANYL
     Indication: PRODUCT USED FOR UNKNOWN INDICATION
     Dosage: 50 UG, Q2W
     Route: 065

REACTIONS (5)
  - Skin exfoliation [Unknown]
  - Eye pain [Unknown]
  - Swelling of eyelid [Unknown]
  - Skin swelling [Unknown]
  - Skin wrinkling [Unknown]
